FAERS Safety Report 4445392-2 (Version None)
Quarter: 2004Q3

REPORT INFORMATION
  Report Type: 
  Country: None (occurrence: None)
  Receive Date: 20040729
  Receipt Date: 20040226
  Transmission Date: 20050211
  Serious: Yes (Hospitalization)
  Sender: FDA-Public Use
  Company Number: 2004AP00684

PATIENT
  Age: 76 Year
  Sex: Female

DRUGS (2)
  1. ELAVIL [Suspect]
     Indication: DEPRESSIVE DELUSION
     Dosage: 75 MG PO
     Route: 048
  2. HALOPERIDOL [Suspect]
     Indication: DEPRESSIVE SYMPTOM
     Dosage: 2 MG

REACTIONS (1)
  - DELIRIUM [None]
